FAERS Safety Report 6651344-4 (Version None)
Quarter: 2010Q1

REPORT INFORMATION
  Report Type: 
  Country: None (occurrence: None)
  Receive Date: 20100325
  Receipt Date: 20100317
  Transmission Date: 20100710
  Serious: Yes (Other)
  Sender: FDA-Public Use
  Company Number: A0851045A

PATIENT
  Age: 31 Year
  Sex: Female

DRUGS (1)
  1. NICODERM CQ [Suspect]
     Indication: SMOKING CESSATION THERAPY
     Route: 062
     Dates: start: 20100315

REACTIONS (11)
  - ABNORMAL DREAMS [None]
  - ANXIETY [None]
  - APPLICATION SITE PRURITUS [None]
  - DISCOMFORT [None]
  - EXPIRED DRUG ADMINISTERED [None]
  - HALLUCINATION [None]
  - HEADACHE [None]
  - MUSCULOSKELETAL PAIN [None]
  - NAUSEA [None]
  - NECK PAIN [None]
  - PAIN IN EXTREMITY [None]
